FAERS Safety Report 19596984 (Version 1)
Quarter: 2021Q3

REPORT INFORMATION
  Report Type: Spontaneous
  Country: US (occurrence: US)
  Receive Date: 20210722
  Receipt Date: 20210722
  Transmission Date: 20211014
  Serious: No
  Sender: FDA-Public Use
  Company Number: US-ASTRAZENECA-2021A618879

PATIENT
  Age: 32791 Day
  Sex: Female
  Weight: 81.6 kg

DRUGS (5)
  1. BYDUREON [Concomitant]
     Active Substance: EXENATIDE
     Indication: DIABETES MELLITUS
     Route: 058
  2. DICLOFENAC [Concomitant]
     Active Substance: DICLOFENAC
     Indication: FIBROMYALGIA
     Route: 065
  3. BYDUREON BCISE [Suspect]
     Active Substance: EXENATIDE
     Indication: TYPE 2 DIABETES MELLITUS
     Dosage: 2MG/ML ONCE A WEEK
     Route: 058
     Dates: start: 20210628
  4. BYETTA [Concomitant]
     Active Substance: EXENATIDE
     Indication: TYPE 2 DIABETES MELLITUS
     Route: 058
     Dates: start: 2017
  5. DICLOFENAC [Concomitant]
     Active Substance: DICLOFENAC
     Indication: THYROID DISORDER
     Route: 065

REACTIONS (2)
  - Injection site pain [Unknown]
  - Blood glucose increased [Unknown]

NARRATIVE: CASE EVENT DATE: 20210628
